FAERS Safety Report 6407824-X (Version None)
Quarter: 2009Q4

REPORT INFORMATION
  Report Type: 
  Country: None (occurrence: None)
  Receive Date: 20091015
  Receipt Date: 20091005
  Transmission Date: 20100525
  Serious: Yes (Other)
  Sender: FDA-Public Use
  Company Number: 347799

PATIENT
  Age: 21 Year
  Sex: Male

DRUGS (5)
  1. ONDANSETRON [Suspect]
     Dosage: 4 MG, INTRAVENOUS
     Route: 042
  2. SODIUM LACTATE IN PLASTIC CONTAINER [Concomitant]
  3. FENTANYL-100 [Concomitant]
  4. MORPHINE [Concomitant]
  5. PROPOFOL [Concomitant]

REACTIONS (4)
  - CONVULSION [None]
  - HYPERSENSITIVITY [None]
  - INCOHERENT [None]
  - LOSS OF CONSCIOUSNESS [None]
